FAERS Safety Report 21168517 (Version 1)
Quarter: 2022Q3

REPORT INFORMATION
  Report Type: Report from Study
  Country: US (occurrence: US)
  Receive Date: 20220803
  Receipt Date: 20220803
  Transmission Date: 20221027
  Serious: Yes (Hospitalization, Other)
  Sender: FDA-Public Use
  Company Number: US-NOVARTISPH-NVSC2020US362637

PATIENT
  Age: 0 Year
  Sex: Female
  Weight: 23.6 kg

DRUGS (17)
  1. ZOLGENSMA [Suspect]
     Active Substance: ONASEMNOGENE ABEPARVOVEC-XIOI
     Indication: Spinal muscular atrophy
     Dosage: 2.0X10E14 VG/KG, ONCE/SINGLE
     Route: 042
     Dates: start: 20141202, end: 20141202
  2. INFUSAN D5 + NS [Concomitant]
     Indication: Fluid imbalance
     Dosage: 54 ML/HR
     Route: 042
     Dates: start: 20200519
  3. ACETAMINOPHEN [Concomitant]
     Active Substance: ACETAMINOPHEN
     Indication: Pain
     Dosage: 256 MG
     Route: 065
     Dates: start: 20200516
  4. ACETAMINOPHEN [Concomitant]
     Active Substance: ACETAMINOPHEN
     Dosage: 256 MG
     Route: 065
     Dates: start: 20200519
  5. ACETAMINOPHEN [Concomitant]
     Active Substance: ACETAMINOPHEN
     Dosage: 256 MG
     Route: 065
     Dates: start: 20200521
  6. CALCIUM CARBONATE [Concomitant]
     Active Substance: CALCIUM CARBONATE
     Indication: Abdominal discomfort
     Dosage: 500 MG
     Route: 065
     Dates: start: 20200521
  7. DEXTROSE LACTATED RINGER^S [Concomitant]
     Indication: Fluid imbalance
     Dosage: 54 ML/HR
     Route: 065
     Dates: start: 20200516
  8. DEXTROSE LACTATED RINGER^S [Concomitant]
     Dosage: 54 ML/HR
     Route: 065
     Dates: start: 20200517
  9. DEXTROSE LACTATED RINGER^S [Concomitant]
     Dosage: 54 ML/HR
     Route: 065
     Dates: start: 20200519
  10. DEXTROSE LACTATED RINGER^S [Concomitant]
     Dosage: 54 ML/HR
     Route: 065
     Dates: start: 20200520
  11. ONDANSETRON [Concomitant]
     Active Substance: ONDANSETRON
     Indication: Nausea
     Dosage: 4 MG
     Route: 065
     Dates: start: 20200519
  12. ONDANSETRON [Concomitant]
     Active Substance: ONDANSETRON
     Indication: Vomiting
     Dosage: 4 MG
     Route: 065
     Dates: start: 20200520
  13. CLOBETASOL [Concomitant]
     Active Substance: CLOBETASOL
     Indication: Alopecia
     Dosage: UNK (ONE APPLICATION DAILY)
     Route: 061
     Dates: start: 20161026
  14. VITAMINS [Concomitant]
     Active Substance: VITAMINS
     Indication: Nutritional supplementation
     Dosage: 1 TABLET, QD (ROUTE GT)
     Route: 065
     Dates: start: 20190428
  15. LMX [Concomitant]
     Indication: Pain prophylaxis
     Dosage: 2.5 G
     Route: 061
     Dates: start: 20190428, end: 20190428
  16. CARAFATE [Concomitant]
     Active Substance: SUCRALFATE
     Indication: Antacid therapy
     Dosage: UNK
     Route: 065
  17. SUCRALFATE [Concomitant]
     Active Substance: SUCRALFATE
     Indication: Gastrooesophageal reflux disease
     Dosage: 180 MG
     Route: 065
     Dates: start: 20200520, end: 20200521

REACTIONS (36)
  - Diarrhoea [Unknown]
  - Cough [Unknown]
  - Sputum increased [Unknown]
  - Enterovirus infection [Unknown]
  - Pyrexia [Unknown]
  - Vomiting [Not Recovered/Not Resolved]
  - Hypoaesthesia [Not Recovered/Not Resolved]
  - Acute respiratory failure [Recovered/Resolved]
  - Oxygen saturation decreased [Unknown]
  - Anal incontinence [Recovered/Resolved]
  - Dehydration [Recovered/Resolved]
  - Subcutaneous abscess [Recovered/Resolved]
  - Wound infection [Recovered/Resolved]
  - Headache [Not Recovered/Not Resolved]
  - Dysuria [Not Recovered/Not Resolved]
  - Constipation [Recovered/Resolved]
  - Abdominal pain [Not Recovered/Not Resolved]
  - Tachycardia [Unknown]
  - Hypoglycaemia [Recovering/Resolving]
  - Neck pain [Unknown]
  - Oropharyngeal pain [Unknown]
  - Hypotension [Unknown]
  - Back injury [Recovered/Resolved]
  - Urinary tract infection [Recovered/Resolved]
  - Osteomyelitis [Recovered/Resolved]
  - Dehydration [Recovered/Resolved]
  - Staphylococcal infection [Unknown]
  - Cellulitis [Unknown]
  - Alpha haemolytic streptococcal infection [Unknown]
  - Lung disorder [Unknown]
  - Bacterial infection [Unknown]
  - Urine odour abnormal [Unknown]
  - Wound complication [Not Recovered/Not Resolved]
  - Erythema [Not Recovered/Not Resolved]
  - Wound secretion [Unknown]
  - Gamma-glutamyltransferase increased [Unknown]

NARRATIVE: CASE EVENT DATE: 20141202
